FAERS Safety Report 5894588-1 (Version None)
Quarter: 2008Q3

REPORT INFORMATION
  Report Type: 
  Country: None (occurrence: None)
  Receive Date: 20080922
  Receipt Date: 20080908
  Transmission Date: 20090109
  Serious: Yes (Death, Hospitalization)
  Sender: FDA-Public Use
  Company Number: 8037117

PATIENT
  Age: 61 Year
  Sex: Female

DRUGS (2)
  1. PREDNISOLONE [Suspect]
     Indication: POLYARTHRITIS
  2. BROAD SPECTRUM ANTIBIOTIC [Concomitant]

REACTIONS (13)
  - ANAEMIA [None]
  - BONE ABSCESS [None]
  - DIVERTICULAR PERFORATION [None]
  - HYPOPHYSITIS [None]
  - LEUKOCYTOSIS [None]
  - MENINGITIS [None]
  - MYCOTIC ANEURYSM [None]
  - OSTEOCHONDROSIS [None]
  - PERIDIVERTICULITIS [None]
  - PNEUMONIA [None]
  - PURULENCE [None]
  - RUPTURED CEREBRAL ANEURYSM [None]
  - SUBARACHNOID HAEMORRHAGE [None]
